APPROVED DRUG PRODUCT: CUVPOSA
Active Ingredient: GLYCOPYRROLATE
Strength: 1MG/5ML
Dosage Form/Route: SOLUTION;ORAL
Application: N022571 | Product #001 | TE Code: AA
Applicant: MERZ PHARMACEUTICALS LLC
Approved: Jul 28, 2010 | RLD: Yes | RS: Yes | Type: RX